FAERS Safety Report 8224979-5 (Version None)
Quarter: 2012Q1

REPORT INFORMATION
  Report Type: 
  Country: None (occurrence: None)
  Receive Date: 20120321
  Receipt Date: 20120312
  Transmission Date: 20120608
  Serious: Yes (Hospitalization)
  Sender: FDA-Public Use
  Company Number: GB-ASTRAZENECA-2012SE14738

PATIENT
  Age: 22248 Day
  Sex: Male

DRUGS (15)
  1. PLAVIX [Suspect]
     Indication: CORONARY ARTERY DISEASE
     Route: 048
     Dates: start: 20111013, end: 20120224
  2. MONOSORB XL [Concomitant]
     Indication: ANGINA PECTORIS
     Route: 048
  3. RAMIPRIL [Concomitant]
     Indication: HYPERTENSION
     Route: 048
  4. GLYBURIDE [Concomitant]
     Indication: TYPE 2 DIABETES MELLITUS
     Route: 048
  5. METFORMIN HCL [Concomitant]
     Indication: TYPE 2 DIABETES MELLITUS
     Route: 048
  6. ASPIRIN [Concomitant]
     Route: 048
  7. ASACOL [Concomitant]
     Indication: COLITIS ULCERATIVE
     Route: 048
  8. FELODIPINE [Concomitant]
     Indication: HYPERTENSION
     Route: 048
  9. BISOPROLOL FUMARATE [Concomitant]
     Indication: PROPHYLAXIS
     Route: 048
  10. LEVEMIR [Concomitant]
     Indication: TYPE 2 DIABETES MELLITUS
     Route: 058
  11. PLAVIX [Suspect]
     Route: 048
     Dates: start: 20120227
  12. RAMIPRIL [Concomitant]
     Indication: PROPHYLAXIS
     Route: 048
  13. BISOPROLOL FUMARATE [Concomitant]
     Indication: HYPERTENSION
     Route: 048
  14. PREGABALIN [Concomitant]
     Indication: BACK PAIN
     Route: 048
  15. ATORVASTATIN [Concomitant]
     Indication: HYPERCHOLESTEROLAEMIA
     Route: 048

REACTIONS (1)
  - HAEMORRHOIDS [None]
